FAERS Safety Report 5588267-8 (Version None)
Quarter: 2008Q1

REPORT INFORMATION
  Report Type: 
  Country: None (occurrence: None)
  Receive Date: 20080111
  Receipt Date: 20080110
  Transmission Date: 20080703
  Serious: Yes (Death)
  Sender: FDA-Public Use
  Company Number: US-ASTRAZENECA-2008AC00106

PATIENT
  Age: 56 Year
  Sex: Female

DRUGS (10)
  1. QUETIAPINE [Suspect]
     Route: 048
  2. METOPROLOL [Suspect]
     Route: 048
  3. METAXALONE [Suspect]
     Route: 048
  4. ALPRAZOLAM [Suspect]
     Route: 048
  5. VENLAFAXINE HCL [Suspect]
     Route: 048
  6. EZETIMIBE/SIMVASTATIN [Suspect]
     Route: 048
  7. CHLORPHENIRAMINE MALEATE [Suspect]
     Route: 048
  8. FEXOFENADINE [Suspect]
     Route: 048
  9. ESTROGEN [Suspect]
     Route: 048
  10. BUTALBITAL ACETAMINOPHEN CAFFEINE [Suspect]
     Route: 048

REACTIONS (2)
  - CARDIO-RESPIRATORY ARREST [None]
  - COMPLETED SUICIDE [None]
